FAERS Safety Report 7972334-5 (Version None)
Quarter: 2011Q4

REPORT INFORMATION
  Report Type: 
  Country: None (occurrence: None)
  Receive Date: 20111213
  Receipt Date: 20111205
  Transmission Date: 20120403
  Serious: No
  Sender: FDA-Public Use
  Company Number: US-BIOGENIDEC-2011BI046193

PATIENT
  Sex: Female

DRUGS (2)
  1. TYSABRI [Suspect]
     Indication: MULTIPLE SCLEROSIS
     Route: 042
     Dates: start: 20110719, end: 20110816
  2. TYSABRI [Suspect]
     Route: 042
     Dates: start: 20090505, end: 20090618

REACTIONS (3)
  - UPPER RESPIRATORY TRACT INFECTION [None]
  - FATIGUE [None]
  - ASTHENIA [None]
